FAERS Safety Report 14120221 (Version 1)
Quarter: 2017Q4

REPORT INFORMATION
  Report Type: Spontaneous
  Country: US (occurrence: US)
  Receive Date: 20171024
  Receipt Date: 20171024
  Transmission Date: 20180321
  Serious: No
  Sender: FDA-Public Use
  Company Number: US-ELI_LILLY_AND_COMPANY-US201710003508

PATIENT
  Age: 61 Year
  Sex: Female

DRUGS (2)
  1. METHOTREXATE. [Concomitant]
     Active Substance: METHOTREXATE
     Indication: RHEUMATOID ARTHRITIS
     Dosage: UNK, WEEKLY (1/W)
     Route: 065
  2. BASAGLAR [Suspect]
     Active Substance: INSULIN GLARGINE
     Indication: DIABETES MELLITUS
     Dosage: 34 IU, UNKNOWN
     Route: 065

REACTIONS (5)
  - Fatigue [Unknown]
  - Drug dose omission [Unknown]
  - Weight fluctuation [Unknown]
  - Drug ineffective [Unknown]
  - Hypotension [Unknown]

NARRATIVE: CASE EVENT DATE: 20171008
